FAERS Safety Report 20533275 (Version 1)
Quarter: 2022Q1

REPORT INFORMATION
  Report Type: Spontaneous
  Country: CN (occurrence: CN)
  Receive Date: 20220301
  Receipt Date: 20220301
  Transmission Date: 20220424
  Serious: Yes (Hospitalization, Other)
  Sender: FDA-Public Use
  Company Number: CN-SA-SAC20220222001647

PATIENT
  Age: 64 Year
  Sex: Male

DRUGS (3)
  1. PLAVIX [Suspect]
     Active Substance: CLOPIDOGREL BISULFATE
     Indication: Lacunar stroke
     Dosage: 75 MG, QD
     Route: 048
     Dates: start: 20220202, end: 20220204
  2. PLAVIX [Suspect]
     Active Substance: CLOPIDOGREL BISULFATE
     Dosage: 75 MG
     Route: 048
     Dates: start: 20220204, end: 20220209
  3. ASPIRIN [Suspect]
     Active Substance: ASPIRIN
     Indication: Lacunar stroke
     Dosage: 0.1 G, QD
     Route: 048
     Dates: start: 20220203, end: 20220204

REACTIONS (1)
  - Thrombosis [Recovering/Resolving]

NARRATIVE: CASE EVENT DATE: 20220209
